FAERS Safety Report 23393871 (Version 3)
Quarter: 2024Q1

REPORT INFORMATION
  Report Type: Spontaneous
  Country: FR (occurrence: FR)
  Receive Date: 20240111
  Receipt Date: 20240202
  Transmission Date: 20240409
  Serious: Yes (Hospitalization, Other)
  Sender: FDA-Public Use
  Company Number: FR-GILEAD-2024-0657435

PATIENT
  Age: 58 Year
  Sex: Male

DRUGS (6)
  1. LENACAPAVIR [Suspect]
     Active Substance: LENACAPAVIR
     Indication: Product used for unknown indication
     Dosage: 600 MG, QD D1-D2
     Route: 048
     Dates: start: 20231228, end: 20231229
  2. LENACAPAVIR [Suspect]
     Active Substance: LENACAPAVIR
     Dosage: D8 TABLET
     Route: 048
  3. LENACAPAVIR [Suspect]
     Active Substance: LENACAPAVIR
     Dosage: 300 MG TABLET D15
     Route: 048
     Dates: start: 20240111, end: 20240111
  4. LENACAPAVIR [Suspect]
     Active Substance: LENACAPAVIR
     Dosage: 2 SUBCUTANEOUS INJECTIONS
     Route: 058
  5. SERTRALINE [Concomitant]
     Active Substance: SERTRALINE HYDROCHLORIDE
     Indication: Depression
  6. MIANSERIN [Concomitant]
     Active Substance: MIANSERIN
     Indication: Depression

REACTIONS (1)
  - Clonic convulsion [Not Recovered/Not Resolved]

NARRATIVE: CASE EVENT DATE: 20240101
